FAERS Safety Report 18371202 (Version 2)
Quarter: 2020Q4

REPORT INFORMATION
  Report Type: Spontaneous
  Country: US (occurrence: US)
  Receive Date: 20201012
  Receipt Date: 20201014
  Transmission Date: 20210114
  Serious: No
  Sender: FDA-Public Use
  Company Number: US-PFIZER INC-2020387764

PATIENT
  Age: 57 Year
  Sex: Male
  Weight: 124.74 kg

DRUGS (1)
  1. FESOTERODINE [Suspect]
     Active Substance: FESOTERODINE
     Indication: URINARY INCONTINENCE
     Dosage: UNK

REACTIONS (2)
  - Dry mouth [Unknown]
  - Drug ineffective [Unknown]
